FAERS Safety Report 18416734 (Version 2)
Quarter: 2021Q2

REPORT INFORMATION
  Report Type: Report from Study
  Country: FR (occurrence: FR)
  Receive Date: 20201022
  Receipt Date: 20210607
  Transmission Date: 20210717
  Serious: Yes (Hospitalization, Other)
  Sender: FDA-Public Use
  Company Number: FR-MYLANLABS-2020M1088752

PATIENT
  Age: 66 Year
  Sex: Male
  Weight: 76 kg

DRUGS (16)
  1. RISPERDAL [Concomitant]
     Active Substance: RISPERIDONE
     Dosage: 1 DF, QD
     Route: 048
  2. CABAZITAXEL [Suspect]
     Active Substance: CABAZITAXEL
     Indication: PROSTATE CANCER METASTATIC
     Dosage: 16 MG/M2, QOW
     Route: 042
  3. LERCAN [Concomitant]
     Active Substance: LERCANIDIPINE
     Dosage: 1 DF, QD
     Route: 048
  4. PREDNISOLONE. [Suspect]
     Active Substance: PREDNISOLONE
     Indication: PROSTATE CANCER METASTATIC
     Dosage: 10 MG, QD
     Route: 048
     Dates: start: 20200831
  5. CREON [Concomitant]
     Active Substance: PANCRELIPASE AMYLASE\PANCRELIPASE LIPASE\PANCRELIPASE PROTEASE
     Dosage: 2 DF, QD
     Route: 048
  6. CACIT D3 [Concomitant]
     Active Substance: CALCIUM\CHOLECALCIFEROL
     Indication: PROSTATE CANCER
     Dosage: 1 DF, QD
     Route: 048
  7. DIFFU K [Concomitant]
     Active Substance: POTASSIUM CHLORIDE
     Dosage: 1 DF, QD
     Route: 048
  8. PREVISCAN                          /00261401/ [Concomitant]
     Active Substance: PENTOXIFYLLINE
     Dosage: 0.5 DF, QD
     Route: 048
  9. IMODIUM [Concomitant]
     Active Substance: LOPERAMIDE HYDROCHLORIDE
     Dosage: 1 DF, QD
     Route: 048
  10. NOVORAPID [Concomitant]
     Active Substance: INSULIN ASPART
     Dosage: 10 UI
     Route: 058
  11. LENOGRASTIM [Suspect]
     Active Substance: LENOGRASTIM
     Indication: PROSTATE CANCER METASTATIC
     Dosage: 1 DF WILL BE INJECTED FROM DAY 3 TO DAY 7 (5 DAYS) AFTER EVERY ADMINISTRATION OF CABAZITAXEL
     Route: 058
     Dates: start: 20200916, end: 20200920
  12. LANTUS [Concomitant]
     Active Substance: INSULIN GLARGINE
     Dosage: 56 UI
     Route: 058
  13. CABAZITAXEL [Suspect]
     Active Substance: CABAZITAXEL
     Dosage: 16 MG/M2, QOW
     Route: 042
     Dates: start: 20200914, end: 20200914
  14. COTAREG [Concomitant]
     Active Substance: HYDROCHLOROTHIAZIDE\VALSARTAN
     Dosage: 1 DF, QD
     Route: 048
  15. ZOPICLONE [Concomitant]
     Active Substance: ZOPICLONE
     Dosage: 1 DF, QD
     Route: 048
  16. METFORMIN [Concomitant]
     Active Substance: METFORMIN HYDROCHLORIDE
     Dosage: 1 G, TID
     Route: 048

REACTIONS (6)
  - Intestinal sepsis [Unknown]
  - Blood loss anaemia [Unknown]
  - Rectal haemorrhage [Unknown]
  - Anal fistula infection [Unknown]
  - General physical health deterioration [Not Recovered/Not Resolved]
  - Shunt thrombosis [Unknown]

NARRATIVE: CASE EVENT DATE: 202009
